FAERS Safety Report 6628606-X (Version None)
Quarter: 2010Q1

REPORT INFORMATION
  Report Type: 
  Country: None (occurrence: None)
  Receive Date: 20100311
  Receipt Date: 20100111
  Transmission Date: 20100710
  Serious: Yes (Hospitalization)
  Sender: FDA-Public Use
  Company Number: GB-TEVA-226903ISR

PATIENT
  Sex: Male

DRUGS (11)
  1. PREDNISOLONE [Suspect]
     Indication: PROSTATE CANCER
     Route: 048
     Dates: start: 20081126
  2. ABIRATERONE ACETATE OR PLACEBO [Suspect]
     Indication: PROSTATE CANCER
     Route: 048
     Dates: start: 20081126
  3. ENOXAPARIN SODIUM [Concomitant]
     Indication: PROPHYLAXIS
  4. MAG-LAX [Concomitant]
     Indication: PROPHYLAXIS
  5. FENTANYL [Concomitant]
     Indication: CANCER PAIN
     Route: 061
     Dates: start: 20081210
  6. SENNA ALEXANDRINA [Concomitant]
     Indication: PROPHYLAXIS
     Route: 048
     Dates: start: 20081227
  7. LANSOPRAZOLE [Concomitant]
     Indication: PROPHYLAXIS
     Route: 048
     Dates: start: 20090213
  8. PARACETAMOL [Concomitant]
     Indication: CANCER PAIN
     Dosage: AS NEEDED
     Dates: start: 20090213
  9. FENTANYL CITRATE [Concomitant]
     Indication: CANCER PAIN
     Dosage: AS NEEDED
     Route: 048
     Dates: start: 20081108
  10. DEXAMETHASONE [Concomitant]
     Indication: PROPHYLAXIS
     Route: 048
     Dates: start: 20081215, end: 20090108
  11. ONDANSETRON [Concomitant]
     Indication: PROPHYLAXIS
     Route: 042
     Dates: start: 20081223, end: 20081229

REACTIONS (2)
  - DEHYDRATION [None]
  - VOMITING [None]
